FAERS Safety Report 23440669 (Version 9)
Quarter: 2024Q2

REPORT INFORMATION
  Report Type: Spontaneous
  Country: CA (occurrence: CA)
  Receive Date: 20240125
  Receipt Date: 20240424
  Transmission Date: 20240715
  Serious: Yes (Other)
  Sender: FDA-Public Use
  Company Number: CA-CELLTRION INC.-2023CA018851

PATIENT

DRUGS (8)
  1. INFLECTRA [Suspect]
     Active Substance: INFLIXIMAB-DYYB
     Indication: Crohn^s disease
     Dosage: 500 MG, INDUCTION DOSES AT WEEK 0, 2 AND 6, THEN EVERY 8 WEEKS
     Route: 042
     Dates: start: 20231020
  2. INFLECTRA [Suspect]
     Active Substance: INFLIXIMAB-DYYB
     Dosage: 500 MG, INDUCTION DOSES AT WEEK 0, 2 AND 6, THEN EVERY 8 WEEKS (WEEK 2 OF INDUCTION)
     Route: 042
     Dates: start: 20231102
  3. INFLECTRA [Suspect]
     Active Substance: INFLIXIMAB-DYYB
     Dosage: 500 MG, INDUCTION DOSES AT WEEK 0, 2 AND 6, THEN EVERY 8 WEEKS (AFTER 4 WEEKS (WEEK 6 OF INDUCTION))
     Route: 042
     Dates: start: 20231130
  4. INFLECTRA [Suspect]
     Active Substance: INFLIXIMAB-DYYB
     Dosage: 500 MG, AFTER 10 WEEKS (PRESCRIBED EVERY 8 WEEKS)
     Route: 042
     Dates: start: 20240212
  5. INFLECTRA [Suspect]
     Active Substance: INFLIXIMAB-DYYB
     Dosage: 500 MG, AFTER 10 WEEKS (PRESCRIBED EVERY 8 WEEKS)
     Route: 042
     Dates: start: 20240212, end: 20240212
  6. INFLECTRA [Suspect]
     Active Substance: INFLIXIMAB-DYYB
     Dosage: 500 MG, AFTER 10 WEEKS (PRESCRIBED EVERY 8 WEEKS)
     Route: 042
     Dates: end: 202403
  7. IMURAN [Concomitant]
     Active Substance: AZATHIOPRINE
     Dosage: 1 DF (PILL), DAILY
     Dates: start: 20230919
  8. PREDNISONE [Concomitant]
     Active Substance: PREDNISONE
     Dosage: 1 DF
     Dates: start: 20230909

REACTIONS (24)
  - Acne [Recovered/Resolved]
  - Dermatitis acneiform [Recovered/Resolved]
  - Dyspnoea [Recovered/Resolved]
  - Painful respiration [Recovered/Resolved]
  - Back pain [Recovered/Resolved]
  - Discomfort [Recovered/Resolved]
  - Vomiting [Recovered/Resolved]
  - Flank pain [Recovered/Resolved]
  - Nausea [Recovered/Resolved]
  - Erythema [Recovered/Resolved]
  - Abdominal distension [Recovered/Resolved]
  - Lethargy [Recovered/Resolved]
  - Hypersensitivity [Recovered/Resolved]
  - Feeling hot [Recovered/Resolved]
  - Drug specific antibody present [Unknown]
  - Condition aggravated [Not Recovered/Not Resolved]
  - Arthralgia [Recovered/Resolved]
  - Anal fissure [Recovered/Resolved]
  - Rosacea [Not Recovered/Not Resolved]
  - Nausea [Unknown]
  - Fatigue [Unknown]
  - Off label use [Unknown]
  - Inappropriate schedule of product administration [Unknown]
  - Incorrect dose administered [Unknown]

NARRATIVE: CASE EVENT DATE: 20231102
